FAERS Safety Report 10389754 (Version 1)
Quarter: 2014Q3

REPORT INFORMATION
  Report Type: Spontaneous
  Country: CA (occurrence: CA)
  Receive Date: 20140818
  Receipt Date: 20140818
  Transmission Date: 20150326
  Serious: Yes (Other)
  Sender: FDA-Public Use
  Company Number: CA-BAYER-2014-119403

PATIENT
  Age: 44 Year
  Sex: Male

DRUGS (1)
  1. BETASERON [Suspect]
     Active Substance: INTERFERON BETA-1B
     Indication: SECONDARY PROGRESSIVE MULTIPLE SCLEROSIS

REACTIONS (6)
  - Limb discomfort [None]
  - Abdominal discomfort [None]
  - Paraesthesia [None]
  - Multiple sclerosis relapse [None]
  - Balance disorder [None]
  - Influenza like illness [None]
